FAERS Safety Report 7227763-4 (Version None)
Quarter: 2011Q1

REPORT INFORMATION
  Report Type: 
  Country: None (occurrence: None)
  Receive Date: 20110114
  Receipt Date: 20110111
  Transmission Date: 20110831
  Serious: Yes (Other)
  Sender: FDA-Public Use
  Company Number: US-PFIZER INC-2011007485

PATIENT
  Sex: Female
  Weight: 64.4 kg

DRUGS (3)
  1. CHANTIX [Suspect]
     Indication: SMOKING CESSATION THERAPY
     Dosage: 0.5 MG, DAILY
     Route: 048
     Dates: start: 20110102, end: 20110107
  2. PRISTIQ [Concomitant]
     Indication: DEPRESSION
     Dosage: UNK
  3. LEXAPRO [Concomitant]
     Indication: DEPRESSION
     Dosage: UNK

REACTIONS (2)
  - MANIA [None]
  - DEPRESSION [None]
